FAERS Safety Report 8065700-3 (Version None)
Quarter: 2012Q1

REPORT INFORMATION
  Report Type: 
  Country: None (occurrence: None)
  Receive Date: 20120124
  Receipt Date: 20111219
  Transmission Date: 20120608
  Serious: Yes (Life-Threatening, Other)
  Sender: FDA-Public Use
  Company Number: IT-CELGENEUS-083-50794-11122514

PATIENT
  Age: 62 Year
  Sex: Female

DRUGS (3)
  1. RED BLOOD CELLS [Concomitant]
     Route: 041
  2. ASPIRIN [Concomitant]
     Route: 065
  3. VIDAZA [Suspect]
     Route: 058

REACTIONS (5)
  - PERITONEAL HAEMORRHAGE [None]
  - SHOCK HAEMORRHAGIC [None]
  - PNEUMONIA [None]
  - SPLENIC RUPTURE [None]
  - THROMBOCYTOPENIA [None]
